FAERS Safety Report 16665292 (Version 2)
Quarter: 2024Q3

REPORT INFORMATION
  Report Type: Spontaneous
  Country: US (occurrence: US)
  Receive Date: 20190803
  Receipt Date: 20240802
  Transmission Date: 20241017
  Serious: Yes (Other)
  Sender: ACCORD
  Company Number: US-ACCORD-129766

PATIENT
  Age: 64 Year
  Sex: Female

DRUGS (8)
  1. DOCETAXEL [Suspect]
     Active Substance: DOCETAXEL\DOCETAXEL ANHYDROUS
     Indication: Breast cancer
     Dosage: NUMBER OF CYCLES: 06
     Route: 042
     Dates: start: 20161206, end: 20170411
  2. PARAPLATIN [Suspect]
     Active Substance: CARBOPLATIN
     Indication: Breast cancer
     Dosage: NUMBER OF CYCLES: 06
     Route: 042
     Dates: start: 20161206, end: 20170411
  3. METFORMIN [Concomitant]
     Active Substance: METFORMIN HYDROCHLORIDE
     Dates: start: 20140217
  4. LOSARTAN [Concomitant]
     Active Substance: LOSARTAN
     Dates: start: 20141229
  5. ETODOLAC [Concomitant]
     Active Substance: ETODOLAC
  6. GEMFIBROZIL [Concomitant]
     Active Substance: GEMFIBROZIL
  7. PANTOPRAZOLE [Concomitant]
     Active Substance: PANTOPRAZOLE
  8. VALTREX [Concomitant]
     Active Substance: VALACYCLOVIR HYDROCHLORIDE

REACTIONS (1)
  - Alopecia [Not Recovered/Not Resolved]

NARRATIVE: CASE EVENT DATE: 20161201
